FAERS Safety Report 5822370-X (Version None)
Quarter: 2008Q3

REPORT INFORMATION
  Report Type: 
  Country: None (occurrence: None)
  Receive Date: 20080725
  Receipt Date: 20080718
  Transmission Date: 20090109
  Serious: Yes (Death, Hospitalization)
  Sender: FDA-Public Use
  Company Number: US-ASTRAZENECA-2008UW13757

PATIENT
  Age: 37 Year
  Sex: Female

DRUGS (2)
  1. SEROQUEL [Suspect]
     Dosage: 2.7 MG/LT
     Route: 048
  2. WELLBUTRIN [Concomitant]

REACTIONS (5)
  - COMPLETED SUICIDE [None]
  - CONFUSIONAL STATE [None]
  - DRUG TOXICITY [None]
  - NAUSEA [None]
  - VOMITING [None]
